FAERS Safety Report 8346336-3 (Version None)
Quarter: 2012Q2

REPORT INFORMATION
  Report Type: 
  Country: None (occurrence: None)
  Receive Date: 20120509
  Receipt Date: 20120507
  Transmission Date: 20120825
  Serious: Yes (Other)
  Sender: FDA-Public Use
  Company Number: CH-PFIZER INC-2012095738

PATIENT
  Age: 9 Year
  Sex: Female
  Weight: 24 kg

DRUGS (6)
  1. SUTENT [Suspect]
     Indication: THYROID CANCER METASTATIC
     Dosage: 37.5 MG, 1X/DAY
     Route: 048
     Dates: start: 20111007, end: 20111104
  2. SUTENT [Suspect]
     Dosage: 25 MG, 1X/DAY
     Route: 048
     Dates: start: 20120212, end: 20120313
  3. SUTENT [Suspect]
     Dosage: 25 MG, 1X/DAY
     Route: 048
     Dates: start: 20120326, end: 20120412
  4. SUTENT [Suspect]
     Dosage: 37.5 MG, 1X/DAY
     Route: 048
     Dates: start: 20120101, end: 20120101
  5. EUTHYROX [Concomitant]
     Indication: HORMONE THERAPY
     Dosage: 75 UG, UNK
     Route: 048
     Dates: start: 20100601
  6. SUTENT [Suspect]
     Dosage: 37.5 MG, 1X/DAY
     Route: 048
     Dates: start: 20111117, end: 20111215

REACTIONS (6)
  - CARDIOMYOPATHY ACUTE [None]
  - RENAL FAILURE [None]
  - EYELID OEDEMA [None]
  - GENERAL PHYSICAL HEALTH DETERIORATION [None]
  - THROMBOCYTOPENIA [None]
  - ABDOMINAL PAIN [None]
